FAERS Safety Report 11694928 (Version 2)
Quarter: 2015Q4

REPORT INFORMATION
  Report Type: Spontaneous
  Country: US (occurrence: US)
  Receive Date: 20151103
  Receipt Date: 20151116
  Transmission Date: 20160304
  Serious: Yes (Other)
  Sender: FDA-Public Use
  Company Number: PHHY2015US136256

PATIENT
  Age: 52 Year
  Sex: Male

DRUGS (8)
  1. CLONIDINE. [Suspect]
     Active Substance: CLONIDINE
     Indication: PRODUCT USED FOR UNKNOWN INDICATION
     Dosage: 41 UG, UNK
     Route: 037
     Dates: start: 20150711
  2. DILAUDID [Suspect]
     Active Substance: HYDROMORPHONE HYDROCHLORIDE
     Indication: PRODUCT USED FOR UNKNOWN INDICATION
     Dosage: 3.8 MG, QD
     Route: 037
     Dates: start: 20150711
  3. BACLOFEN INTRATHECAL [Suspect]
     Active Substance: BACLOFEN
     Indication: MUSCLE SPASTICITY
     Dosage: 481 UG, QD
     Route: 037
  4. BUPIVACAINE [Suspect]
     Active Substance: BUPIVACAINE
     Indication: PRODUCT USED FOR UNKNOWN INDICATION
     Dosage: 4 MG, QD
     Route: 037
     Dates: start: 20150711
  5. LYRICA [Suspect]
     Active Substance: PREGABALIN
     Indication: PRODUCT USED FOR UNKNOWN INDICATION
     Dosage: UNK
     Route: 048
  6. TRAMADOL. [Suspect]
     Active Substance: TRAMADOL
     Indication: PRODUCT USED FOR UNKNOWN INDICATION
     Dosage: UNK
     Route: 048
  7. NORCO [Suspect]
     Active Substance: ACETAMINOPHEN\HYDROCODONE BITARTRATE
     Indication: PRODUCT USED FOR UNKNOWN INDICATION
     Dosage: UNK
     Route: 048
  8. PYRIDIUM [Suspect]
     Active Substance: PHENAZOPYRIDINE
     Indication: PRODUCT USED FOR UNKNOWN INDICATION
     Dosage: UNK
     Route: 048

REACTIONS (13)
  - Intervertebral disc degeneration [Unknown]
  - Proctalgia [Unknown]
  - Arachnoiditis [Unknown]
  - Spinal osteoarthritis [Unknown]
  - Localised oedema [Unknown]
  - Intervertebral disc disorder [Unknown]
  - Intervertebral discitis [Unknown]
  - Facet joint syndrome [Unknown]
  - Vertebral foraminal stenosis [Unknown]
  - Intervertebral disc protrusion [Unknown]
  - Computerised tomogram abnormal [Unknown]
  - Osteomyelitis [Unknown]
  - Infection [Unknown]

NARRATIVE: CASE EVENT DATE: 20150401
